FAERS Safety Report 5499864-2 (Version None)
Quarter: 2007Q4

REPORT INFORMATION
  Report Type: 
  Country: None (occurrence: None)
  Receive Date: 20071026
  Receipt Date: 20071015
  Transmission Date: 20080405
  Serious: Yes (Other)
  Sender: FDA-Public Use
  Company Number: US-PFIZER INC-2007086524

PATIENT
  Sex: Female
  Weight: 81.818 kg

DRUGS (5)
  1. LIPITOR [Suspect]
     Indication: BLOOD CHOLESTEROL INCREASED
     Dates: start: 20071008, end: 20071014
  2. NORVASC [Suspect]
     Indication: HYPERTENSION
  3. LODINE [Concomitant]
  4. PROTONIX [Concomitant]
  5. PREDNISONE [Concomitant]

REACTIONS (6)
  - BLOOD PRESSURE INCREASED [None]
  - CHEST PAIN [None]
  - DISTURBANCE IN ATTENTION [None]
  - FEELING ABNORMAL [None]
  - IRRITABILITY [None]
  - SPEECH DISORDER [None]
